FAERS Safety Report 8244685-0 (Version None)
Quarter: 2012Q1

REPORT INFORMATION
  Report Type: 
  Country: None (occurrence: None)
  Receive Date: 20120329
  Receipt Date: 20120123
  Transmission Date: 20120608
  Serious: No
  Sender: FDA-Public Use
  Company Number: US-MYLANLABS-2012S1001894

PATIENT
  Age: 36 Year
  Sex: Male
  Weight: 111.13 kg

DRUGS (4)
  1. MOBIC [Concomitant]
     Indication: PAIN
  2. FENTANYL-100 [Suspect]
     Indication: BACK PAIN
     Dosage: Q3D
     Route: 062
     Dates: start: 20120101
  3. NEURONTIN [Concomitant]
     Indication: NEURALGIA
  4. FLEXERIL [Concomitant]
     Indication: MUSCLE SPASMS

REACTIONS (2)
  - DRUG WITHDRAWAL SYNDROME [None]
  - DRUG EFFECT INCREASED [None]
